FAERS Safety Report 4949014-3 (Version None)
Quarter: 2006Q1

REPORT INFORMATION
  Report Type: 
  Country: None (occurrence: None)
  Receive Date: 20060321
  Receipt Date: 20060315
  Transmission Date: 20060701
  Serious: Yes (Hospitalization)
  Sender: FDA-Public Use
  Company Number: 2006UW04372

PATIENT
  Age: 20535 Day
  Sex: Female

DRUGS (9)
  1. CRESTOR [Suspect]
     Indication: DIABETES MELLITUS NON-INSULIN-DEPENDENT
     Route: 048
  2. TESAGLITAZAR CODE NOT BROKEN [Suspect]
     Indication: DIABETES MELLITUS NON-INSULIN-DEPENDENT
     Route: 048
     Dates: start: 20051031, end: 20051211
  3. TESAGLITAZAR CODE NOT BROKEN [Suspect]
     Route: 048
     Dates: start: 20051212
  4. METFORMIN [Concomitant]
     Indication: DIABETES MELLITUS
     Route: 048
     Dates: end: 20051016
  5. ANADOR [Concomitant]
     Indication: HEADACHE
     Route: 048
  6. AMLODIPINE [Concomitant]
     Indication: HYPERTENSION
     Route: 048
  7. RANITIDINE [Concomitant]
     Indication: ABDOMINAL PAIN UPPER
     Route: 048
     Dates: start: 20051212
  8. DOLAMIN [Concomitant]
     Indication: CHEST PAIN
     Route: 048
     Dates: start: 20051214, end: 20051215
  9. FLOTAC [Concomitant]
     Indication: PAIN
     Route: 048
     Dates: start: 20051214, end: 20051215

REACTIONS (2)
  - CHOLECYSTITIS [None]
  - CHOLELITHIASIS [None]
